FAERS Safety Report 15684773 (Version 1)
Quarter: 2018Q4

REPORT INFORMATION
  Report Type: Spontaneous
  Country: US (occurrence: US)
  Receive Date: 20181121
  Receipt Date: 20181121
  Transmission Date: 20190205
  Serious: No
  Sender: FDA-Public Use
  Company Number: None

PATIENT
  Age: 47 Year
  Sex: Female
  Weight: 58.06 kg

DRUGS (3)
  1. LYRICA [Suspect]
     Active Substance: PREGABALIN
  2. SKELAXIN 800MG (GENERIC) [Suspect]
     Active Substance: METAXALONE
  3. METHYLPREDNISOLONE. [Suspect]
     Active Substance: METHYLPREDNISOLONE

REACTIONS (13)
  - Muscle disorder [None]
  - Feeling abnormal [None]
  - Pain in extremity [None]
  - Increased tendency to bruise [None]
  - Asthenia [None]
  - Myalgia [None]
  - Erythema [None]
  - Burning sensation [None]
  - Therapy cessation [None]
  - Drug ineffective [None]
  - Pain [None]
  - Somnolence [None]
  - Hyperaesthesia [None]

NARRATIVE: CASE EVENT DATE: 20061107
